FAERS Safety Report 17102235 (Version 3)
Quarter: 2021Q1

REPORT INFORMATION
  Report Type: Report from Study
  Country: CA (occurrence: CA)
  Receive Date: 20191202
  Receipt Date: 20210201
  Transmission Date: 20210419
  Serious: Yes (Hospitalization)
  Sender: FDA-Public Use
  Company Number: CA-JNJFOC-20191134763

PATIENT
  Age: 19 Year
  Sex: Female
  Weight: 71 kg

DRUGS (2)
  1. REMICADE [Suspect]
     Active Substance: INFLIXIMAB
     Indication: CROHN^S DISEASE
     Dosage: REMICADE Q 6 WEEKS SINCE 2017
     Route: 042
     Dates: start: 20150818
  2. REMICADE [Suspect]
     Active Substance: INFLIXIMAB
     Dosage: PATIENT RECEIVED 40TH INFUSION OF DOSE 670 MG ON 12?AUG?2020
     Route: 042

REACTIONS (1)
  - Tonsillitis [Unknown]
